FAERS Safety Report 16154672 (Version 2)
Quarter: 2019Q3

REPORT INFORMATION
  Report Type: Spontaneous
  Country: JP (occurrence: JP)
  Receive Date: 20190403
  Receipt Date: 20190830
  Transmission Date: 20191004
  Serious: No
  Sender: FDA-Public Use
  Company Number: JP-ELI_LILLY_AND_COMPANY-JP201901014519

PATIENT
  Sex: Female
  Weight: 58 kg

DRUGS (11)
  1. VERZENIO [Suspect]
     Active Substance: ABEMACICLIB
     Dosage: 200 MG, UNKNOWN
     Route: 048
     Dates: start: 20190307, end: 20190410
  2. PRIMPERAN [Concomitant]
     Active Substance: METOCLOPRAMIDE HYDROCHLORIDE
     Indication: PROPHYLAXIS OF NAUSEA AND VOMITING
     Dosage: 5 MG, PRN
     Route: 048
  3. VERZENIO [Suspect]
     Active Substance: ABEMACICLIB
     Indication: BREAST CANCER STAGE IV
     Dosage: 150 MG, BID
     Route: 048
     Dates: start: 20190112, end: 20190125
  4. VERZENIO [Suspect]
     Active Substance: ABEMACICLIB
     Dosage: 150 MG, UNKNOWN
     Route: 048
     Dates: start: 20190209, end: 20190213
  5. DEXTROMETHORPHAN HYDROBROMIDE. [Concomitant]
     Active Substance: DEXTROMETHORPHAN HYDROBROMIDE
     Indication: COUGH
     Dosage: 45 MG, DAILY
     Route: 048
     Dates: start: 20181226, end: 20190306
  6. LANSOPRAZOLE. [Concomitant]
     Active Substance: LANSOPRAZOLE
     Indication: GASTROOESOPHAGEAL REFLUX PROPHYLAXIS
     Dosage: 15 MG, DAILY
     Route: 048
     Dates: start: 20190104, end: 20190208
  7. ZOLPIDEM TARTRATE. [Concomitant]
     Active Substance: ZOLPIDEM TARTRATE
     Indication: INSOMNIA
     Dosage: 5 MG, DAILY
     Route: 048
     Dates: start: 20181226, end: 20190522
  8. MIYA-BM [Concomitant]
     Active Substance: CLOSTRIDIUM BUTYRICUM SPORES STRAIN M-55
     Indication: PROPHYLAXIS AGAINST DIARRHOEA
     Dosage: 1 DOSAGE FORM, TID
     Route: 048
     Dates: start: 20190111, end: 20190508
  9. LOPERAMIDE HYDROCHLORIDE. [Concomitant]
     Active Substance: LOPERAMIDE HYDROCHLORIDE
     Indication: PROPHYLAXIS AGAINST DIARRHOEA
     Dosage: 1 MG, PRN
     Route: 048
  10. FASLODEX [Suspect]
     Active Substance: FULVESTRANT
     Indication: BREAST CANCER STAGE IV
     Dosage: 500 MG, OTHER
     Route: 030
     Dates: start: 20190111, end: 20190410
  11. BILANOA [Concomitant]
     Active Substance: BILASTINE
     Indication: SEASONAL ALLERGY
     Dosage: 20 MG, DAILY
     Route: 048
     Dates: start: 20190116, end: 20190424

REACTIONS (2)
  - Liver disorder [Recovered/Resolved]
  - Eye movement disorder [Recovered/Resolved]

NARRATIVE: CASE EVENT DATE: 20190125
